FAERS Safety Report 5279803-X (Version None)
Quarter: 2007Q1

REPORT INFORMATION
  Report Type: 
  Country: None (occurrence: None)
  Receive Date: 20070322
  Receipt Date: 20070307
  Transmission Date: 20070707
  Serious: Yes (Hospitalization)
  Sender: FDA-Public Use
  Company Number: CIO07003623

PATIENT
  Age: 23 Year
  Sex: Male
  Weight: 108.8 kg

DRUGS (1)
  1. CREST WHITENING PLUS SCOPE EXTREME, MINT EXPLOSION FLAVOR(ETHANOL 1.14 [Suspect]
     Dosage: 1 APPLIC, 1/DAY FOR 2 DAYS, INTRAORAL
     Route: 048
     Dates: start: 20070306, end: 20070307

REACTIONS (2)
  - PHARYNGEAL HAEMORRHAGE [None]
  - VOMITING [None]
